FAERS Safety Report 11244009 (Version 1)
Quarter: 2015Q3

REPORT INFORMATION
  Report Type: Spontaneous
  Country: US (occurrence: US)
  Receive Date: 20150707
  Receipt Date: 20150707
  Transmission Date: 20151125
  Serious: No
  Sender: FDA-Public Use
  Company Number: US-DSJP-DSU-2014-132939

PATIENT
  Age: 66 Year
  Sex: Male
  Weight: 117.91 kg

DRUGS (2)
  1. MANY MEDICATIONS [Concomitant]
     Indication: PRODUCT USED FOR UNKNOWN INDICATION
     Dosage: UNK
  2. WELCHOL [Suspect]
     Active Substance: COLESEVELAM HYDROCHLORIDE
     Indication: HYPERLIPIDAEMIA
     Dosage: 625 MG, 4 TABLETS DAILY
     Route: 048

REACTIONS (4)
  - Diabetes mellitus [Not Recovered/Not Resolved]
  - Drug administration error [Not Recovered/Not Resolved]
  - Blood pressure abnormal [Not Recovered/Not Resolved]
  - Blood triglycerides abnormal [Not Recovered/Not Resolved]

NARRATIVE: CASE EVENT DATE: 2011
